FAERS Safety Report 11145897 (Version 3)
Quarter: 2015Q3

REPORT INFORMATION
  Report Type: Spontaneous
  Country: BR (occurrence: BR)
  Receive Date: 20150528
  Receipt Date: 20150915
  Transmission Date: 20151125
  Serious: Yes (Other)
  Sender: FDA-Public Use
  Company Number: BR-SA-2015SA045186

PATIENT
  Age: 64 Year
  Sex: Female
  Weight: 79 kg

DRUGS (15)
  1. THIOCTACID [Concomitant]
     Active Substance: .ALPHA.-LIPOIC ACID
     Indication: HYPOAESTHESIA
     Dosage: THIOCTACID 600 ML
     Route: 048
  2. SERENATA [Concomitant]
     Active Substance: SERTRALINE HYDROCHLORIDE
     Indication: DEPRESSION
     Route: 048
  3. CALCITRAN D3 [Concomitant]
     Indication: OSTEOPOROSIS
     Route: 048
  4. LANTUS [Suspect]
     Active Substance: INSULIN GLARGINE
     Indication: TYPE 2 DIABETES MELLITUS
     Route: 058
  5. MIOSAN [Concomitant]
     Active Substance: CYCLOBENZAPRINE
     Indication: BURNING SENSATION
     Dosage: MIOSAN CAF? (CYCLOBENZAPRINE HYDROCHLORIDE) 30 MG
     Route: 048
  6. LANTUS [Suspect]
     Active Substance: INSULIN GLARGINE
     Indication: TYPE 2 DIABETES MELLITUS
     Route: 058
     Dates: start: 2014
  7. FLUOXETINE [Concomitant]
     Active Substance: FLUOXETINE\FLUOXETINE HYDROCHLORIDE
     Indication: DEPRESSION
     Route: 048
  8. THIOCTACID [Concomitant]
     Active Substance: .ALPHA.-LIPOIC ACID
     Indication: BURNING SENSATION
     Dosage: THIOCTACID 600 ML
     Route: 048
  9. FLUOXETINE [Concomitant]
     Active Substance: FLUOXETINE\FLUOXETINE HYDROCHLORIDE
     Indication: SEDATION
     Route: 048
  10. MIOSAN [Concomitant]
     Active Substance: CYCLOBENZAPRINE
     Indication: HYPOAESTHESIA
     Dosage: MIOSAN CAF? (CYCLOBENZAPRINE HYDROCHLORIDE) 30 MG
     Route: 048
  11. MIOSAN [Concomitant]
     Active Substance: CYCLOBENZAPRINE
     Indication: PAIN
     Dosage: MIOSAN CAF? (CYCLOBENZAPRINE HYDROCHLORIDE) 30 MG
     Route: 048
  12. METFORMIN [Concomitant]
     Active Substance: METFORMIN HYDROCHLORIDE
     Indication: TYPE 2 DIABETES MELLITUS
     Route: 048
  13. DOMPERIDONE [Concomitant]
     Active Substance: DOMPERIDONE
     Indication: CARDIAC DISORDER
     Route: 048
  14. THIOCTACID [Concomitant]
     Active Substance: .ALPHA.-LIPOIC ACID
     Indication: PAIN
     Dosage: THIOCTACID 600 ML
     Route: 048
  15. SERENATA [Concomitant]
     Active Substance: SERTRALINE HYDROCHLORIDE
     Indication: SEDATION
     Route: 048

REACTIONS (26)
  - Dermatitis diaper [Unknown]
  - Chromaturia [Unknown]
  - Fatigue [Unknown]
  - Abdominal distension [Recovering/Resolving]
  - Urinary incontinence [Not Recovered/Not Resolved]
  - Urine odour abnormal [Not Recovered/Not Resolved]
  - Abdominal distension [Unknown]
  - Urinary tract infection [Unknown]
  - Injection site haemorrhage [Recovering/Resolving]
  - Vomiting [Not Recovered/Not Resolved]
  - Asthenia [Not Recovered/Not Resolved]
  - Dizziness [Not Recovered/Not Resolved]
  - Injection site nodule [Recovering/Resolving]
  - Hand fracture [Not Recovered/Not Resolved]
  - Skin mass [Recovering/Resolving]
  - Blood glucose abnormal [Recovered/Resolved]
  - Peripheral swelling [Unknown]
  - Lung disorder [Unknown]
  - Weight decreased [Unknown]
  - Neuralgia [Not Recovered/Not Resolved]
  - Back pain [Unknown]
  - Arrhythmia [Unknown]
  - Abdominal pain [Not Recovered/Not Resolved]
  - Urine flow decreased [Unknown]
  - Mitral valve prolapse [Unknown]
  - Anxiety [Not Recovered/Not Resolved]

NARRATIVE: CASE EVENT DATE: 2012
